FAERS Safety Report 15889799 (Version 1)
Quarter: 2019Q1

REPORT INFORMATION
  Report Type: Report from Study
  Country: CN (occurrence: CN)
  Receive Date: 20190130
  Receipt Date: 20190130
  Transmission Date: 20190417
  Serious: Yes (Hospitalization)
  Sender: FDA-Public Use
  Company Number: CN-ELI_LILLY_AND_COMPANY-CN201811014027

PATIENT
  Age: 52 Year
  Sex: Male
  Weight: 67 kg

DRUGS (7)
  1. CISPLATIN. [Concomitant]
     Active Substance: CISPLATIN
     Dosage: 132 MG, UNKNOWN
     Route: 042
     Dates: end: 20171107
  2. CETUXIMAB. [Suspect]
     Active Substance: CETUXIMAB
     Dosage: 445 MG, WEEKLY (1/W)
     Route: 042
     Dates: end: 20181108
  3. CETUXIMAB. [Suspect]
     Active Substance: CETUXIMAB
     Indication: SQUAMOUS CELL CARCINOMA OF HEAD AND NECK
     Dosage: 728 MG, WEEKLY (1/W)
     Route: 042
     Dates: start: 20170925
  4. 5 FU [Concomitant]
     Active Substance: FLUOROURACIL
     Indication: SQUAMOUS CELL CARCINOMA OF HEAD AND NECK
     Dosage: 6825 MG, UNKNOWN (26-SEP-2017 00:11 TO 30-SEP-2017 16:45)
     Route: 042
     Dates: start: 20170926
  5. CETUXIMAB. [Suspect]
     Active Substance: CETUXIMAB
     Dosage: 364 MG, WEEKLY (1/W)
     Route: 042
     Dates: start: 20181130
  6. CISPLATIN. [Concomitant]
     Active Substance: CISPLATIN
     Indication: SQUAMOUS CELL CARCINOMA OF HEAD AND NECK
     Dosage: 136.5 MG, UNKNOWN
     Route: 042
     Dates: start: 20170925
  7. 5 FU [Concomitant]
     Active Substance: FLUOROURACIL
     Dosage: 6600 MG, UNKNOWN (07-NOV-2017 21:17 TO 12-NOV-2017 15:37, C3)
     Route: 042
     Dates: end: 20171107

REACTIONS (1)
  - Skin infection [Recovered/Resolved]

NARRATIVE: CASE EVENT DATE: 20181106
